FAERS Safety Report 18762121 (Version 7)
Quarter: 2024Q3

REPORT INFORMATION
  Report Type: Spontaneous
  Country: CA (occurrence: CA)
  Receive Date: 20210120
  Receipt Date: 20240918
  Transmission Date: 20241017
  Serious: Yes (Other)
  Sender: NOVARTIS
  Company Number: NVSC2021CA007926

PATIENT
  Age: 50 Year
  Sex: Female

DRUGS (21)
  1. COSENTYX [Suspect]
     Active Substance: SECUKINUMAB
     Indication: Psoriasis
     Dosage: UNK
     Route: 065
  2. COSENTYX [Suspect]
     Active Substance: SECUKINUMAB
     Dosage: 300 MG, QMO
     Route: 065
  3. COSENTYX [Suspect]
     Active Substance: SECUKINUMAB
     Dosage: UNK
     Route: 065
  4. COSENTYX [Suspect]
     Active Substance: SECUKINUMAB
     Dosage: 300 MG, QMO
     Route: 058
  5. COSENTYX [Suspect]
     Active Substance: SECUKINUMAB
     Dosage: UNK
     Route: 065
  6. COSENTYX [Suspect]
     Active Substance: SECUKINUMAB
     Dosage: 300 MG
     Route: 058
  7. CYCLOSPORINE [Suspect]
     Active Substance: CYCLOSPORINE
     Indication: Psoriasis
     Dosage: UNK
     Route: 065
  8. METHOTREXATE [Suspect]
     Active Substance: METHOTREXATE
     Indication: Psoriasis
     Dosage: UNK
     Route: 065
  9. ARTHROTEC [Concomitant]
     Active Substance: DICLOFENAC SODIUM\MISOPROSTOL
     Indication: Psoriatic arthropathy
     Dosage: UNK
     Route: 065
  10. CYCLOBENZAPRINE HYDROCHLORIDE [Concomitant]
     Active Substance: CYCLOBENZAPRINE HYDROCHLORIDE
     Indication: Muscle tightness
     Dosage: UNK
     Route: 065
  11. CYCLOBENZAPRINE HYDROCHLORIDE [Concomitant]
     Active Substance: CYCLOBENZAPRINE HYDROCHLORIDE
     Dosage: UNK
     Route: 065
  12. DEXILANT [Concomitant]
     Active Substance: DEXLANSOPRAZOLE
     Indication: Gait disturbance
     Dosage: UNK (DELAYED RELEASE)
     Route: 065
  13. IMOVANE [Concomitant]
     Active Substance: ZOPICLONE
     Indication: Insomnia
     Dosage: UNK
     Route: 065
  14. IMOVANE [Concomitant]
     Active Substance: ZOPICLONE
     Dosage: UNK
     Route: 065
  15. PROPAFENONE [Concomitant]
     Active Substance: PROPAFENONE
     Indication: Arrhythmia
     Dosage: UNK
     Route: 065
  16. PROPRANOLOL HYDROCHLORIDE [Concomitant]
     Active Substance: PROPRANOLOL HYDROCHLORIDE
     Indication: Arrhythmia
     Dosage: UNK
     Route: 065
  17. QUETIAPINE FUMARATE [Concomitant]
     Active Substance: QUETIAPINE FUMARATE
     Indication: Insomnia
     Dosage: UNK
     Route: 065
  18. REMERON [Concomitant]
     Active Substance: MIRTAZAPINE
     Indication: Insomnia
     Dosage: UNK
     Route: 065
  19. RISPERDAL [Concomitant]
     Active Substance: RISPERIDONE
     Indication: Insomnia
     Dosage: UNK
     Route: 065
  20. CYCLOBENZAPRINE HYDROCHLORIDE [Concomitant]
     Active Substance: CYCLOBENZAPRINE HYDROCHLORIDE
     Indication: Muscle tightness
     Dosage: UNK
     Route: 065
  21. CYCLOBENZAPRINE HYDROCHLORIDE [Concomitant]
     Active Substance: CYCLOBENZAPRINE HYDROCHLORIDE
     Dosage: UNK
     Route: 065

REACTIONS (18)
  - Groin infection [Recovered/Resolved]
  - Disease recurrence [Recovered/Resolved]
  - Infectious mononucleosis [Recovered/Resolved]
  - Pain in extremity [Recovered/Resolved]
  - Scratch [Recovered/Resolved]
  - Staphylococcal infection [Recovered/Resolved]
  - Streptococcal infection [Recovered/Resolved]
  - Lymphoma [Recovered/Resolved]
  - Neoplasm malignant [Recovered/Resolved]
  - Pain of skin [Recovered/Resolved]
  - Skin burning sensation [Recovered/Resolved]
  - Injection site haemorrhage [Recovered/Resolved]
  - Psoriasis [Recovered/Resolved]
  - Pruritus [Recovered/Resolved]
  - Injection site injury [Recovered/Resolved]
  - Product temperature excursion issue [Recovered/Resolved]
  - Pustular psoriasis [Recovered/Resolved]
  - Drug ineffective [Recovered/Resolved]
